FAERS Safety Report 6943273-3 (Version None)
Quarter: 2010Q3

REPORT INFORMATION
  Report Type: 
  Country: None (occurrence: None)
  Receive Date: 20100826
  Receipt Date: 20100820
  Transmission Date: 20110219
  Serious: No
  Sender: FDA-Public Use
  Company Number: US-TEVA-245999USA

PATIENT
  Sex: Female

DRUGS (1)
  1. ALBUTEROL SULFATE AUTOHALER [Suspect]
     Indication: WHEEZING
     Route: 055
     Dates: start: 20100801

REACTIONS (2)
  - DYSGEUSIA [None]
  - THERMAL BURN [None]
